FAERS Safety Report 7046930-6 (Version None)
Quarter: 2010Q4

REPORT INFORMATION
  Report Type: 
  Country: None (occurrence: None)
  Receive Date: 20101012
  Receipt Date: 20100927
  Transmission Date: 20110411
  Serious: Yes (Life-Threatening, Hospitalization)
  Sender: FDA-Public Use
  Company Number: 2010AP001354

PATIENT
  Age: 56 Year
  Sex: Male

DRUGS (8)
  1. ATORVASTATIN CALCIUM [Suspect]
     Indication: CEREBROVASCULAR ACCIDENT
     Dosage: 20 MG
  2. PERINDOPRIL ERBUMINE [Suspect]
     Indication: CEREBROVASCULAR ACCIDENT
     Dosage: 4 MG
  3. RANITIDINE HYDROCHLORIDE [Suspect]
     Indication: CEREBROVASCULAR ACCIDENT
     Dosage: 150 MG; BID
  4. INDAPAMIDE [Suspect]
     Indication: CEREBROVASCULAR ACCIDENT
     Dosage: 2.5 MG
  5. EZETIMIBE [Suspect]
     Dosage: 10 MG; PO
     Route: 048
  6. ASPIRIN [Concomitant]
  7. GLUCOSAMINE (GLUCOSAMINE) [Concomitant]
  8. GLYCERYL TRINITRATE (GLYCERYL TRINITRATE) [Concomitant]

REACTIONS (2)
  - HYPOTENSION [None]
  - STEVENS-JOHNSON SYNDROME [None]
